FAERS Safety Report 7795871-5 (Version None)
Quarter: 2011Q4

REPORT INFORMATION
  Report Type: 
  Country: None (occurrence: None)
  Receive Date: 20111004
  Receipt Date: 20110923
  Transmission Date: 20120403
  Serious: Yes (Hospitalization)
  Sender: FDA-Public Use
  Company Number: US-JNJFOC-20110906753

PATIENT
  Sex: Female
  Weight: 25.86 kg

DRUGS (8)
  1. REMICADE [Suspect]
     Route: 042
     Dates: start: 20110106
  2. PREDNISONE [Concomitant]
  3. M.V.I. [Concomitant]
  4. CALCIUM WITH VITAMIN D [Concomitant]
  5. REMICADE [Suspect]
     Route: 042
     Dates: start: 20110908
  6. PRILOSEC [Concomitant]
  7. REMICADE [Suspect]
     Indication: CROHN'S DISEASE
     Route: 042
     Dates: start: 20110825
  8. IRON [Concomitant]

REACTIONS (1)
  - ABDOMINAL ABSCESS [None]
